FAERS Safety Report 7381661-4 (Version None)
Quarter: 2011Q1

REPORT INFORMATION
  Report Type: 
  Country: None (occurrence: None)
  Receive Date: 20110329
  Receipt Date: 20101007
  Transmission Date: 20110831
  Serious: Yes (Hospitalization, Other)
  Sender: FDA-Public Use
  Company Number: US-BAYER-201016234NA

PATIENT
  Sex: Female
  Weight: 67.12 kg

DRUGS (3)
  1. HYDROCODONE BITARTRATE AND ACETAMINOPHEN [Concomitant]
  2. YAZ [Suspect]
     Indication: CONTRACEPTION
     Dosage: UNK
  3. SYNTHROID [Concomitant]

REACTIONS (8)
  - DIPLEGIA [None]
  - MONOPLEGIA [None]
  - HYPOAESTHESIA [None]
  - CONVULSION [None]
  - HEADACHE [None]
  - HYPOAESTHESIA FACIAL [None]
  - CEREBROVASCULAR ACCIDENT [None]
  - SUPERIOR SAGITTAL SINUS THROMBOSIS [None]
